FAERS Safety Report 8085838-4 (Version None)
Quarter: 2012Q1

REPORT INFORMATION
  Report Type: 
  Country: None (occurrence: None)
  Receive Date: 20120128
  Receipt Date: 20110609
  Transmission Date: 20120608
  Serious: No
  Sender: FDA-Public Use
  Company Number: US-ABBOTT-11P-163-0731371-00

PATIENT
  Age: 52 Year
  Sex: Female

DRUGS (6)
  1. UNKNOWN MEDICATIONS [Concomitant]
     Indication: BLOOD PRESSURE
  2. AMBIEN [Concomitant]
     Indication: INSOMNIA
     Route: 048
  3. HUMIRA [Suspect]
     Indication: PSORIATIC ARTHROPATHY
     Dates: start: 20110326
  4. UNKNOWN MEDICATIONS [Concomitant]
     Indication: DEPRESSION
  5. METOPROLOL TARTRATE [Concomitant]
     Indication: HYPERTENSION
     Route: 048
  6. IMITREX [Concomitant]
     Indication: PRODUCT USED FOR UNKNOWN INDICATION
     Route: 048

REACTIONS (2)
  - FATIGUE [None]
  - DRUG INEFFECTIVE [None]
